FAERS Safety Report 9971456 (Version 1)
Quarter: 2014Q1

REPORT INFORMATION
  Report Type: Report from Study
  Country: US (occurrence: US)
  Receive Date: 20140306
  Receipt Date: 20140306
  Transmission Date: 20141002
  Serious: No
  Sender: FDA-Public Use
  Company Number: US-ABBVIE-13P-163-1152754-00

PATIENT
  Sex: Female
  Weight: 42.22 kg

DRUGS (10)
  1. HUMIRA [Suspect]
     Indication: CROHN^S DISEASE
     Route: 058
  2. OMEPRAZOLE [Concomitant]
     Indication: PRODUCT USED FOR UNKNOWN INDICATION
  3. AZATHIOPRINE [Concomitant]
     Indication: PRODUCT USED FOR UNKNOWN INDICATION
  4. AMITRIPTYLIN [Concomitant]
     Indication: PRODUCT USED FOR UNKNOWN INDICATION
  5. ENTOCORT [Concomitant]
     Indication: PRODUCT USED FOR UNKNOWN INDICATION
     Dosage: 3MG/24HR
  6. VIACTIV [Concomitant]
     Indication: PRODUCT USED FOR UNKNOWN INDICATION
  7. MULT CHW VITAMIN [Concomitant]
     Indication: PRODUCT USED FOR UNKNOWN INDICATION
  8. BROMAX [Concomitant]
     Indication: PRODUCT USED FOR UNKNOWN INDICATION
  9. ACIDOPHILUS [Concomitant]
     Indication: PRODUCT USED FOR UNKNOWN INDICATION
  10. CALCIUM CHW [Concomitant]
     Indication: PRODUCT USED FOR UNKNOWN INDICATION

REACTIONS (1)
  - Drug ineffective [Unknown]
